FAERS Safety Report 14714114 (Version 2)
Quarter: 2018Q4

REPORT INFORMATION
  Report Type: Spontaneous
  Country: US (occurrence: US)
  Receive Date: 20180404
  Receipt Date: 20181107
  Transmission Date: 20190204
  Serious: Yes (Hospitalization, Other)
  Sender: FDA-Public Use
  Company Number: US-JNJFOC-20180402349

PATIENT
  Age: 35 Year
  Sex: Male

DRUGS (1)
  1. INVOKANA [Suspect]
     Active Substance: CANAGLIFLOZIN
     Indication: TYPE 2 DIABETES MELLITUS
     Route: 048
     Dates: start: 20151214, end: 20160730

REACTIONS (3)
  - Foot amputation [Unknown]
  - Toe amputation [Unknown]
  - Sepsis [Unknown]

NARRATIVE: CASE EVENT DATE: 201608
